FAERS Safety Report 8418811-4 (Version None)
Quarter: 2012Q2

REPORT INFORMATION
  Report Type: 
  Country: None (occurrence: None)
  Receive Date: 20120607
  Receipt Date: 20120530
  Transmission Date: 20120825
  Serious: Yes (Other)
  Sender: FDA-Public Use
  Company Number: US-PFIZER INC-2012033800

PATIENT
  Sex: Female
  Weight: 74.376 kg

DRUGS (12)
  1. LIPITOR [Suspect]
     Dosage: 10 MG, 1X/DAY
     Route: 048
     Dates: start: 20110101
  2. HYDROCHLOROTHIAZIDE [Concomitant]
     Indication: FLUID RETENTION
     Dosage: UNK
  3. LIPITOR [Suspect]
     Indication: CARDIAC DISORDER
     Dosage: 40 MG, 1X/DAY
     Route: 048
     Dates: start: 20080101, end: 20110101
  4. CORDARONE [Suspect]
     Dosage: UNK
     Dates: start: 20080101
  5. ACETYLSALICYLIC ACID [Concomitant]
     Indication: CARDIAC DISORDER
     Dosage: 81 MG, UNK
  6. ACCUPRIL [Suspect]
     Indication: CARDIAC DISORDER
     Dosage: UNK
     Dates: start: 20080101
  7. LASIX [Concomitant]
     Indication: FLUID RETENTION
     Dosage: UNK
  8. COUMADIN [Concomitant]
     Indication: ANTICOAGULANT THERAPY
     Dosage: UNK
  9. VITAMIN D [Concomitant]
     Indication: VITAMIN D DECREASED
     Dosage: UNK
  10. INSULIN [Concomitant]
     Indication: DIABETES MELLITUS
     Dosage: UNK
  11. CARDURA [Suspect]
     Dosage: UNK
     Dates: start: 20080101
  12. COREG [Concomitant]
     Indication: CARDIAC DISORDER
     Dosage: UNK

REACTIONS (4)
  - BLOOD THYROID STIMULATING HORMONE DECREASED [None]
  - MUSCULAR WEAKNESS [None]
  - DYSPNOEA [None]
  - CATARACT [None]
